FAERS Safety Report 6968214-4 (Version None)
Quarter: 2010Q3

REPORT INFORMATION
  Report Type: 
  Country: None (occurrence: None)
  Receive Date: 20100907
  Receipt Date: 20100827
  Transmission Date: 20110219
  Serious: Yes (Other)
  Sender: FDA-Public Use
  Company Number: US-JNJFOC-20100900441

PATIENT
  Sex: Female
  Weight: 79.38 kg

DRUGS (5)
  1. LEVAQUIN [Suspect]
     Indication: CYSTITIS
     Route: 048
  2. SULFAMETHOXAZOLE [Concomitant]
     Indication: CYSTITIS
     Route: 065
  3. OXYCODONE [Concomitant]
     Indication: PAIN
     Route: 065
  4. ALL OTHER THERAPEUTIC PRODUCT [Concomitant]
     Route: 065
  5. HYDROCORTISONE [Concomitant]
     Indication: ADDISON'S DISEASE
     Route: 065

REACTIONS (3)
  - ACTIVITIES OF DAILY LIVING IMPAIRED [None]
  - JOINT DISLOCATION [None]
  - MUSCULOSKELETAL PAIN [None]
